FAERS Safety Report 7229987-9 (Version None)
Quarter: 2011Q1

REPORT INFORMATION
  Report Type: 
  Country: None (occurrence: None)
  Receive Date: 20110117
  Receipt Date: 20110110
  Transmission Date: 20110831
  Serious: Yes (Death)
  Sender: FDA-Public Use
  Company Number: US-GILEAD-2011-0035110

PATIENT
  Sex: Male
  Weight: 59.728 kg

DRUGS (19)
  1. FENTANYL [Concomitant]
     Indication: SEDATION
     Dates: start: 20101218, end: 20101225
  2. RITONAVIR [Concomitant]
     Indication: HIV INFECTION
     Dates: start: 20101219, end: 20101225
  3. PROMETHAZINE [Concomitant]
     Indication: NAUSEA
     Dates: start: 20101217, end: 20101225
  4. CIPROFLOXACIN [Concomitant]
     Indication: PRODUCT USED FOR UNKNOWN INDICATION
     Dates: start: 20101222, end: 20101225
  5. VANCOMYCIN [Concomitant]
     Indication: PRODUCT USED FOR UNKNOWN INDICATION
     Route: 048
     Dates: start: 20101224, end: 20101225
  6. LASIX [Concomitant]
     Indication: FLUID RETENTION
     Dates: start: 20101224, end: 20101225
  7. ZOFRAN [Concomitant]
     Indication: NAUSEA
     Dates: start: 20101217, end: 20101225
  8. GANCICLOVIR [Concomitant]
     Indication: PRODUCT USED FOR UNKNOWN INDICATION
     Dates: start: 20101221, end: 20101225
  9. PENTAMIDINE ISETHIONATE [Concomitant]
     Indication: PRODUCT USED FOR UNKNOWN INDICATION
     Dates: start: 20101221, end: 20101225
  10. VASOPRESSIN [Concomitant]
     Dates: start: 20101225, end: 20101225
  11. SOLU-MEDROL [Concomitant]
     Indication: PRODUCT USED FOR UNKNOWN INDICATION
     Dates: start: 20101218, end: 20101225
  12. AMBISOME [Suspect]
     Indication: CRYPTOCOCCOSIS
     Dates: start: 20101218, end: 20101225
  13. TRUVADA [Suspect]
     Indication: HIV INFECTION
     Route: 048
     Dates: start: 20101219, end: 20101221
  14. VERSED [Concomitant]
     Indication: SEDATION
     Dates: start: 20101218, end: 20101225
  15. ALBUTEROL [Concomitant]
     Indication: ASTHMA
     Route: 065
     Dates: start: 20101218, end: 20101220
  16. INSULIN [Concomitant]
     Indication: DIABETES MELLITUS
     Dates: start: 20101224, end: 20101225
  17. DARUNAVIR [Concomitant]
     Indication: HIV INFECTION
     Dates: start: 20101219, end: 20101221
  18. AZITHROMYCIN [Concomitant]
     Indication: PRODUCT USED FOR UNKNOWN INDICATION
     Route: 065
     Dates: start: 20101217, end: 20101218
  19. MOXIFLOXACIN [Concomitant]
     Indication: PRODUCT USED FOR UNKNOWN INDICATION
     Dates: start: 20101217, end: 20101217

REACTIONS (1)
  - DEATH [None]
